FAERS Safety Report 4754265-7 (Version None)
Quarter: 2005Q3

REPORT INFORMATION
  Report Type: 
  Country: None (occurrence: None)
  Receive Date: 20050817
  Receipt Date: 20050803
  Transmission Date: 20060218
  Serious: Yes (Hospitalization)
  Sender: FDA-Public Use
  Company Number: DSGL-ZLB/05/69/GFR

PATIENT
  Age: 80 Year
  Sex: Female
  Weight: 63 kg

DRUGS (7)
  1. SANDOGLOBULIN [Suspect]
     Indication: SECONDARY IMMUNODEFICIENCY
     Dosage: 10 G, ONCE, I.V.
     Route: 042
     Dates: start: 20050714, end: 20050714
  2. ALLOPURINOL 300 (ALLOPURINOL) [Concomitant]
  3. PREDNISOLONE [Concomitant]
  4. ZOMETA [Concomitant]
  5. BENDAMUSTINE (BENDAMUSTINE0 [Concomitant]
  6. KEVATRIL 9GRANISETRON HYDROCHLORIDE) [Concomitant]
  7. AMLODIPINE [Concomitant]

REACTIONS (4)
  - BLOOD PRESSURE INCREASED [None]
  - CHEST DISCOMFORT [None]
  - DYSPNOEA [None]
  - FEELING HOT [None]
